FAERS Safety Report 6025403-3 (Version None)
Quarter: 2008Q4

REPORT INFORMATION
  Report Type: 
  Country: None (occurrence: None)
  Receive Date: 20081224
  Receipt Date: 20081212
  Transmission Date: 20090506
  Serious: Yes (Hospitalization)
  Sender: FDA-Public Use
  Company Number: 2008PV037282

PATIENT
  Age: 70 Year
  Sex: Male

DRUGS (12)
  1. SYMLIN [Suspect]
     Indication: TYPE 2 DIABETES MELLITUS
     Dosage: 120 MCG;TID; SC;   60 MCG;TID; SC
     Route: 058
     Dates: start: 20080101, end: 20081101
  2. SYMLIN [Suspect]
     Indication: TYPE 2 DIABETES MELLITUS
     Dosage: 120 MCG;TID; SC;   60 MCG;TID; SC
     Route: 058
     Dates: start: 20081101, end: 20081201
  3. HUMULIN 50/50 [Concomitant]
  4. METFORMIN HCL [Concomitant]
  5. ALTACE [Concomitant]
  6. CREON [Concomitant]
  7. DIOVAN HCT [Concomitant]
  8. PROTONIX [Concomitant]
  9. SULAR [Concomitant]
  10. LIPITOR [Concomitant]
  11. ZYRTEC [Concomitant]
  12. ADVAIR DISKUS 250/50 [Concomitant]

REACTIONS (5)
  - BLOOD GLUCOSE INCREASED [None]
  - PANCREATIC ATROPHY [None]
  - PANCREATIC CYST [None]
  - PANCREATIC DUCT DILATATION [None]
  - PANCREATITIS CHRONIC [None]
